FAERS Safety Report 11101119 (Version 1)
Quarter: 2015Q2

REPORT INFORMATION
  Report Type: Spontaneous
  Country: US (occurrence: US)
  Receive Date: 20150508
  Receipt Date: 20150508
  Transmission Date: 20150821
  Serious: Yes (Hospitalization)
  Sender: FDA-Public Use
  Company Number: US-SA-2015SA059380

PATIENT
  Age: 58 Year
  Sex: Female
  Weight: 72.57 kg

DRUGS (21)
  1. WELLBUTRIN [Interacting]
     Active Substance: BUPROPION HYDROCHLORIDE
     Indication: ANXIOLYTIC THERAPY
     Route: 048
  2. POLYETHYLENE GLYCOL [Concomitant]
     Active Substance: POLYETHYLENE GLYCOLS
  3. GRALISE [Interacting]
     Active Substance: GABAPENTIN
     Indication: POST HERPETIC NEURALGIA
     Route: 048
     Dates: start: 201404
  4. DEMEROL [Suspect]
     Active Substance: MEPERIDINE HYDROCHLORIDE
     Dosage: DOSE-50-100
     Route: 065
  5. WELLBUTRIN [Interacting]
     Active Substance: BUPROPION HYDROCHLORIDE
     Indication: EX-TOBACCO USER
     Route: 048
  6. VYTORIN [Concomitant]
     Active Substance: EZETIMIBE\SIMVASTATIN
  7. VALIUM [Concomitant]
     Active Substance: DIAZEPAM
  8. RESTASIS [Concomitant]
     Active Substance: CYCLOSPORINE
  9. PROPOFOL. [Concomitant]
     Active Substance: PROPOFOL
  10. NUCYNTA [Interacting]
     Active Substance: TAPENTADOL HYDROCHLORIDE
     Dosage: DOSE: 50-100MG EVERY THREE HOURS AS NEEDED
     Route: 048
     Dates: start: 20150126, end: 20150130
  11. PROZAC [Interacting]
     Active Substance: FLUOXETINE HYDROCHLORIDE
     Indication: ANTIDEPRESSANT THERAPY
     Route: 048
     Dates: start: 2005
  12. DILAUDID [Interacting]
     Active Substance: HYDROMORPHONE HYDROCHLORIDE
     Indication: PROCEDURAL PAIN
     Route: 048
     Dates: start: 20150126
  13. ZOFRAN [Interacting]
     Active Substance: ONDANSETRON HYDROCHLORIDE
     Indication: NAUSEA
     Route: 042
  14. EPHEDRINE [Concomitant]
     Active Substance: EPHEDRINE
     Dates: start: 20150126, end: 20150126
  15. MORPHINE [Interacting]
     Active Substance: MORPHINE
     Indication: PAIN
     Route: 065
  16. FENTANYL. [Interacting]
     Active Substance: FENTANYL
     Indication: PAIN
     Route: 042
     Dates: start: 20150126, end: 20150126
  17. ZOFRAN [Interacting]
     Active Substance: ONDANSETRON HYDROCHLORIDE
     Indication: NAUSEA
     Route: 048
     Dates: start: 20150126, end: 20150126
  18. METFORMIN [Concomitant]
     Active Substance: METFORMIN HYDROCHLORIDE
  19. WELLBUTRIN [Interacting]
     Active Substance: BUPROPION HYDROCHLORIDE
     Indication: PROPHYLAXIS
     Route: 048
  20. TRAMADOL [Interacting]
     Active Substance: TRAMADOL
     Route: 065
  21. NARCAN [Concomitant]
     Active Substance: NALOXONE HYDROCHLORIDE
     Dates: start: 20150126, end: 20150126

REACTIONS (8)
  - Arthropathy [Unknown]
  - Blindness transient [Recovered/Resolved]
  - Screaming [Recovered/Resolved]
  - Pain [Unknown]
  - Fall [Unknown]
  - Drug interaction [Unknown]
  - Weight decreased [Not Recovered/Not Resolved]
  - Serotonin syndrome [Recovered/Resolved]

NARRATIVE: CASE EVENT DATE: 201501
